FAERS Safety Report 4681116-1 (Version None)
Quarter: 2005Q2

REPORT INFORMATION
  Report Type: 
  Country: None (occurrence: None)
  Receive Date: 20050603
  Receipt Date: 20050204
  Transmission Date: 20051028
  Serious: Yes (Hospitalization)
  Sender: FDA-Public Use
  Company Number: US-MERCK-0502USA00667

PATIENT
  Age: 72 Year
  Sex: Female
  Weight: 68 kg

DRUGS (7)
  1. VIOXX [Suspect]
     Indication: MONARTHRITIS
     Route: 048
     Dates: start: 20040607, end: 20040816
  2. VIOXX [Suspect]
     Indication: OSTEOPOROSIS
     Route: 048
     Dates: start: 20040607, end: 20040816
  3. HYDROCHLOROTHIAZIDE [Concomitant]
     Route: 065
  4. ACCUPRIL [Concomitant]
     Route: 065
  5. INDERAL LA [Concomitant]
     Route: 065
  6. ACTONEL [Concomitant]
     Route: 065
  7. ECOTRIN [Concomitant]
     Route: 065

REACTIONS (3)
  - EMOTIONAL DISTRESS [None]
  - GALLBLADDER DISORDER [None]
  - MYOCARDIAL INFARCTION [None]
